FAERS Safety Report 6397391-1 (Version None)
Quarter: 2009Q4

REPORT INFORMATION
  Report Type: 
  Country: None (occurrence: None)
  Receive Date: 20091012
  Receipt Date: 20091005
  Transmission Date: 20100525
  Serious: Yes (Other)
  Sender: FDA-Public Use
  Company Number: TN-BRISTOL-MYERS SQUIBB COMPANY-14806350

PATIENT
  Age: 32 Year
  Sex: Female

DRUGS (1)
  1. HYDROXYCARBAMIDE [Suspect]
     Indication: ESSENTIAL THROMBOCYTHAEMIA

REACTIONS (1)
  - DRUG RASH WITH EOSINOPHILIA AND SYSTEMIC SYMPTOMS [None]
